FAERS Safety Report 5841073-9 (Version None)
Quarter: 2008Q3

REPORT INFORMATION
  Report Type: 
  Country: None (occurrence: None)
  Receive Date: 20080811
  Receipt Date: 20080728
  Transmission Date: 20090109
  Serious: Yes (Other)
  Sender: FDA-Public Use
  Company Number: DE-ELI_LILLY_AND_COMPANY-DE200807000914

PATIENT
  Sex: Female

DRUGS (2)
  1. HUMATROPE [Suspect]
     Indication: GROWTH HORMONE DEFICIENCY
     Dosage: 0.2 MG, DAILY (1/D)
     Route: 058
     Dates: start: 20031209, end: 20071217
  2. HYDROCORTISONE [Concomitant]
     Dosage: UNK, UNKNOWN
     Route: 065
     Dates: start: 20020101

REACTIONS (1)
  - PITUITARY TUMOUR BENIGN [None]
